FAERS Safety Report 8174199-8 (Version None)
Quarter: 2012Q1

REPORT INFORMATION
  Report Type: 
  Country: None (occurrence: None)
  Receive Date: 20120229
  Receipt Date: 20120220
  Transmission Date: 20120608
  Serious: Yes (Hospitalization)
  Sender: FDA-Public Use
  Company Number: US-BAYER-2011-122317

PATIENT
  Age: 39 Year
  Sex: Female
  Weight: 80.726 kg

DRUGS (2)
  1. VENTOLIN [Concomitant]
     Indication: ASTHMA
     Dosage: UNK
     Dates: start: 20020101
  2. YAZ [Suspect]
     Indication: CONTRACEPTION
     Dosage: UNK
     Dates: start: 20081124, end: 20091209

REACTIONS (2)
  - PULMONARY EMBOLISM [None]
  - INJURY [None]
